FAERS Safety Report 11110237 (Version 1)
Quarter: 2015Q2

REPORT INFORMATION
  Report Type: Spontaneous
  Country: GB (occurrence: GB)
  Receive Date: 20150513
  Receipt Date: 20150513
  Transmission Date: 20150821
  Serious: Yes (Hospitalization, Other)
  Sender: FDA-Public Use
  Company Number: GB-GLAXOSMITHKLINE-GB2015063854

PATIENT
  Age: 28 Year
  Sex: Male
  Weight: 108 kg

DRUGS (11)
  1. CIPROFLOXACIN. [Concomitant]
     Active Substance: CIPROFLOXACIN
  2. DOXORUBIN [Concomitant]
     Active Substance: DOXORUBICIN
  3. IFOSFAMIDE. [Concomitant]
     Active Substance: IFOSFAMIDE
  4. PREDNISOLONE. [Concomitant]
     Active Substance: PREDNISOLONE
  5. CO-AMOXICLAV [Concomitant]
     Active Substance: AMOXICILLIN\CLAVULANIC ACID
  6. ORAMORPH SR SUSTAINED RELEASE [Concomitant]
     Active Substance: MORPHINE SULFATE
  7. DALTEPARIN SODIUM [Concomitant]
     Active Substance: DALTEPARIN SODIUM
  8. SENNA [Concomitant]
     Active Substance: SENNA LEAF\SENNOSIDES\SENNOSIDES A AND B
  9. BISOPROLOL [Concomitant]
     Active Substance: BISOPROLOL
  10. PARACETAMOL [Concomitant]
     Active Substance: ACETAMINOPHEN
  11. ONDANSETRON [Suspect]
     Active Substance: ONDANSETRON
     Indication: NAUSEA
     Route: 042

REACTIONS (5)
  - Trismus [Recovered/Resolved]
  - IIIrd nerve disorder [Recovered/Resolved]
  - Somnolence [Recovered/Resolved]
  - Extrapyramidal disorder [Recovered/Resolved]
  - Oculogyric crisis [Recovering/Resolving]

NARRATIVE: CASE EVENT DATE: 20150430
